FAERS Safety Report 15615292 (Version 1)
Quarter: 2018Q4

REPORT INFORMATION
  Report Type: Spontaneous
  Country: FR (occurrence: FR)
  Receive Date: 20181114
  Receipt Date: 20181114
  Transmission Date: 20190205
  Serious: Yes (Hospitalization)
  Sender: FDA-Public Use
  Company Number: FR-ACCORD-092071

PATIENT
  Age: 9 Year
  Sex: Female
  Weight: 25 kg

DRUGS (9)
  1. TAZOCILLINE [Concomitant]
     Active Substance: PIPERACILLIN SODIUM\TAZOBACTAM SODIUM
     Dates: start: 20180705, end: 20180709
  2. PARACETAMOL [Concomitant]
     Active Substance: ACETAMINOPHEN
  3. VANCOMYCIN [Concomitant]
     Active Substance: VANCOMYCIN
     Dates: start: 20180705, end: 20180706
  4. AMIKACIN. [Concomitant]
     Active Substance: AMIKACIN
     Dates: start: 20180705, end: 20180706
  5. MORPHINE [Concomitant]
     Active Substance: MORPHINE
     Dates: start: 20180704, end: 20180711
  6. EXACYL [Concomitant]
     Active Substance: TRANEXAMIC ACID
     Dates: start: 20180706
  7. ACTISKENAN [Concomitant]
     Active Substance: MORPHINE SULFATE
     Dates: start: 20180629, end: 20180704
  8. METHOTREXATE. [Suspect]
     Active Substance: METHOTREXATE
     Indication: OSTEOSARCOMA
     Route: 042
     Dates: start: 20180627
  9. KALINOX [Concomitant]
     Active Substance: NITROUS OXIDE\OXYGEN

REACTIONS (6)
  - Rash [Recovered/Resolved]
  - Rectal haemorrhage [Recovered/Resolved]
  - Glossitis [Recovered/Resolved]
  - Hepatocellular injury [Recovering/Resolving]
  - Colitis [Recovered/Resolved]
  - Pancytopenia [Recovering/Resolving]

NARRATIVE: CASE EVENT DATE: 20180630
